FAERS Safety Report 14543252 (Version 2)
Quarter: 2022Q1

REPORT INFORMATION
  Report Type: Spontaneous
  Country: US (occurrence: US)
  Receive Date: 20180216
  Receipt Date: 20220224
  Transmission Date: 20220423
  Serious: Yes (Other)
  Sender: FDA-Public Use
  Company Number: US-LANTHEUS-LMI-2017-00314

PATIENT
  Age: 58 Year
  Sex: Female

DRUGS (3)
  1. DEFINITY [Suspect]
     Active Substance: PERFLUTREN
     Indication: Stress echocardiogram
     Dosage: 0.375 ML (1.3 ML PREPARED IN 8.7 ML PFNS)
     Route: 042
     Dates: start: 20170630, end: 20170630
  2. BYSTOLIC [Concomitant]
     Active Substance: NEBIVOLOL HYDROCHLORIDE
     Indication: Hypertension
     Dosage: UNK
     Route: 048
  3. PRISTIQ EXTENDED-RELEASE [Concomitant]
     Active Substance: DESVENLAFAXINE SUCCINATE
     Indication: Product used for unknown indication
     Dosage: UNK
     Route: 048

REACTIONS (5)
  - Blood pressure increased [Unknown]
  - Feeling abnormal [Recovering/Resolving]
  - Flushing [Recovering/Resolving]
  - Feeling hot [Recovering/Resolving]
  - Urticaria [Unknown]

NARRATIVE: CASE EVENT DATE: 20170630
